FAERS Safety Report 7146669-2 (Version None)
Quarter: 2010Q4

REPORT INFORMATION
  Report Type: 
  Country: None (occurrence: None)
  Receive Date: 20101208
  Receipt Date: 20101130
  Transmission Date: 20110411
  Serious: Yes (Hospitalization)
  Sender: FDA-Public Use
  Company Number: US-CELGENEUS-163-21880-10120053

PATIENT
  Age: 82 Year
  Sex: Female
  Weight: 54.4 kg

DRUGS (4)
  1. REVLIMID [Suspect]
     Route: 048
     Dates: start: 20100819
  2. REVLIMID [Suspect]
     Route: 048
     Dates: start: 20101111, end: 20101128
  3. EPOETIN ALFA [Suspect]
     Dosage: 60000 UNITS
     Route: 058
     Dates: start: 20100819, end: 20101128
  4. EPOETIN ALFA [Suspect]
     Dosage: 60000 UNITS
     Route: 058
     Dates: start: 20101111, end: 20101124

REACTIONS (1)
  - COLITIS [None]
